FAERS Safety Report 13673924 (Version 1)
Quarter: 2017Q2

REPORT INFORMATION
  Report Type: Spontaneous
  Country: US (occurrence: US)
  Receive Date: 20170620
  Receipt Date: 20170620
  Transmission Date: 20170830
  Serious: Yes (Hospitalization, Disabling)
  Sender: FDA-Public Use
  Company Number: None

PATIENT
  Age: 44 Year
  Sex: Female
  Weight: 117 kg

DRUGS (2)
  1. PROPRANOLOL [Concomitant]
     Active Substance: PROPRANOLOL HYDROCHLORIDE
  2. CLONAZEPAM. [Suspect]
     Active Substance: CLONAZEPAM
     Indication: PANIC ATTACK
     Route: 048

REACTIONS (10)
  - Agitation [None]
  - Nervous system disorder [None]
  - Impaired work ability [None]
  - Depersonalisation/derealisation disorder [None]
  - Fear [None]
  - Derealisation [None]
  - Akathisia [None]
  - Anxiety [None]
  - Depression [None]
  - Loss of personal independence in daily activities [None]

NARRATIVE: CASE EVENT DATE: 20160420
